FAERS Safety Report 18649987 (Version 1)
Quarter: 2020Q4

REPORT INFORMATION
  Report Type: Spontaneous
  Country: FR (occurrence: FR)
  Receive Date: 20201222
  Receipt Date: 20201222
  Transmission Date: 20210114
  Serious: Yes (Hospitalization)
  Sender: FDA-Public Use
  Company Number: NVSC2020FR332325

PATIENT
  Age: 71 Year
  Sex: Male
  Weight: 73 kg

DRUGS (2)
  1. HEPARIN [Suspect]
     Active Substance: HEPARIN SODIUM
     Indication: ANTICOAGULANT THERAPY
     Dosage: FIXED HEPARIN DOSING (UNSPECIFIED DOSE)
     Route: 065
     Dates: start: 20190504, end: 20190504
  2. TRASYLOL [Suspect]
     Active Substance: APROTININ
     Indication: AORTIC VALVE REPLACEMENT
     Dosage: LOADING DOSE 1 MILLION KIUPUMP PRIMING DOSE 1 MILLION KIUTOTAL CONTINUOUS INFUSION DOSE UNSPECIFIED
     Route: 065
     Dates: start: 20190504, end: 20190504

REACTIONS (2)
  - Acute kidney injury [Recovered/Resolved]
  - Product use in unapproved indication [Recovered/Resolved]

NARRATIVE: CASE EVENT DATE: 20190504
